FAERS Safety Report 8103863-1 (Version None)
Quarter: 2012Q1

REPORT INFORMATION
  Report Type: 
  Country: None (occurrence: None)
  Receive Date: 20120201
  Receipt Date: 20120117
  Transmission Date: 20120608
  Serious: Yes (Other)
  Sender: FDA-Public Use
  Company Number: US-WATSON-2012-01023

PATIENT
  Age: 42 Year
  Sex: Female

DRUGS (1)
  1. METRONIDAZOLE [Suspect]
     Indication: TRICHOMONIASIS
     Dosage: 10MG (DOSE 6)
     Route: 048

REACTIONS (4)
  - HYPERSENSITIVITY [None]
  - PRURITUS [None]
  - URTICARIA [None]
  - PARAESTHESIA ORAL [None]
